FAERS Safety Report 14151527 (Version 1)
Quarter: 2017Q4

REPORT INFORMATION
  Report Type: Spontaneous
  Country: US (occurrence: None)
  Receive Date: 20171101
  Receipt Date: 20171101
  Transmission Date: 20180321
  Serious: Yes (Hospitalization)
  Sender: FDA-Public Use
  Company Number: None

PATIENT
  Age: 92 Year
  Sex: Male
  Weight: 70.76 kg

DRUGS (1)
  1. ENOXAPARIN [Suspect]
     Active Substance: ENOXAPARIN
     Indication: ATRIAL FIBRILLATION
     Route: 058
     Dates: start: 20170225, end: 20170228

REACTIONS (12)
  - Lung infiltration [None]
  - Hydronephrosis [None]
  - Drug ineffective [None]
  - Muscle haemorrhage [None]
  - Haemoglobin decreased [None]
  - Abdominal wall haematoma [None]
  - Productive cough [None]
  - Dyspnoea [None]
  - Feeling abnormal [None]
  - Peritoneal haemorrhage [None]
  - Atrial flutter [None]
  - Blood creatinine increased [None]

NARRATIVE: CASE EVENT DATE: 20170301
